FAERS Safety Report 5470424-2 (Version None)
Quarter: 2007Q3

REPORT INFORMATION
  Report Type: 
  Country: None (occurrence: None)
  Receive Date: 20070820
  Receipt Date: 20070508
  Transmission Date: 20080115
  Serious: No
  Sender: FDA-Public Use
  Company Number: WAES 0705USA01825

PATIENT
  Age: 51 Year
  Sex: Female

DRUGS (4)
  1. JANUVIA [Suspect]
     Indication: TYPE 2 DIABETES MELLITUS
     Dosage: 100 MG/DAILY/PO
     Route: 048
     Dates: start: 20070430, end: 20070508
  2. ACTOS [Concomitant]
  3. GLUCOVANCE [Concomitant]
  4. REQUIP [Concomitant]

REACTIONS (3)
  - COUGH [None]
  - DYSPNOEA [None]
  - UPPER RESPIRATORY TRACT CONGESTION [None]
